FAERS Safety Report 6042515-9 (Version None)
Quarter: 2009Q1

REPORT INFORMATION
  Report Type: 
  Country: None (occurrence: None)
  Receive Date: 20090116
  Receipt Date: 20090108
  Transmission Date: 20090719
  Serious: Yes (Death)
  Sender: FDA-Public Use
  Company Number: JP-ABBOTT-08P-087-0465367-00

PATIENT
  Age: 71 Year
  Sex: Male

DRUGS (8)
  1. LEUPROLIDE ACETATE [Suspect]
     Indication: PROSTATE CANCER STAGE II
     Route: 058
     Dates: start: 20061201, end: 20070518
  2. LEUPROLIDE ACETATE [Suspect]
     Route: 058
     Dates: start: 20050617, end: 20061102
  3. CASODEX [Concomitant]
     Indication: PROSTATE CANCER STAGE II
     Route: 048
     Dates: end: 20080201
  4. TAKEPRON [Concomitant]
     Indication: GASTRIC ULCER
     Route: 048
     Dates: end: 20080201
  5. SOLANAX [Concomitant]
     Indication: ANXIETY DISORDER
     Route: 048
     Dates: end: 20080201
  6. ASTOMIN [Concomitant]
     Indication: UPPER RESPIRATORY TRACT INFLAMMATION
     Route: 048
     Dates: end: 20080201
  7. LOXONIN [Concomitant]
     Indication: BACK PAIN
     Route: 048
     Dates: end: 20080201
  8. METEBANYL [Concomitant]
     Indication: BRONCHITIS CHRONIC
     Route: 048
     Dates: end: 20080201

REACTIONS (6)
  - ANXIETY DISORDER [None]
  - BACK PAIN [None]
  - BRONCHITIS CHRONIC [None]
  - GASTRIC ULCER [None]
  - OESOPHAGEAL CARCINOMA [None]
  - UPPER RESPIRATORY TRACT INFLAMMATION [None]
